FAERS Safety Report 21706634 (Version 2)
Quarter: 2022Q4

REPORT INFORMATION
  Report Type: Spontaneous
  Country: SE (occurrence: SE)
  Receive Date: 20221209
  Receipt Date: 20221219
  Transmission Date: 20230112
  Serious: Yes (Other)
  Sender: FDA-Public Use
  Company Number: SE-Calliditas-2022CAL00597

PATIENT
  Sex: Male

DRUGS (2)
  1. BUDESONIDE [Suspect]
     Active Substance: BUDESONIDE
     Indication: Drug level
     Dosage: ONE TIME WITH 4 MG CAPSULES
     Route: 048
     Dates: end: 20220421
  2. BUDESONIDE [Suspect]
     Active Substance: BUDESONIDE
     Indication: Drug level
     Dosage: THREE DOSES WITH 8 MG CAPSULES
     Route: 048

REACTIONS (1)
  - Hyperthyroidism [Recovered/Resolved]

NARRATIVE: CASE EVENT DATE: 20220716
